FAERS Safety Report 11750696 (Version 5)
Quarter: 2019Q1

REPORT INFORMATION
  Report Type: Spontaneous
  Country: ES (occurrence: ES)
  Receive Date: 20151118
  Receipt Date: 20190122
  Transmission Date: 20190417
  Serious: Yes (Death, Other)
  Sender: FDA-Public Use
  Company Number: ES-PFIZER INC-2015388236

PATIENT
  Age: 48 Year
  Sex: Female
  Weight: 70 kg

DRUGS (3)
  1. GLIBENCLAMIDE [Suspect]
     Active Substance: GLYBURIDE
     Dosage: 150 MG, UNK
     Route: 048
  2. LORAZEPAM. [Suspect]
     Active Substance: LORAZEPAM
     Dosage: 50 MG, UNK
     Route: 048
  3. IBUPROFEN. [Suspect]
     Active Substance: IBUPROFEN
     Dosage: UNK
     Route: 048

REACTIONS (2)
  - Completed suicide [Fatal]
  - Intentional overdose [Fatal]
